FAERS Safety Report 5597143-6 (Version None)
Quarter: 2008Q1

REPORT INFORMATION
  Report Type: 
  Country: None (occurrence: None)
  Receive Date: 20080121
  Receipt Date: 20080111
  Transmission Date: 20080703
  Serious: Yes (Other)
  Sender: FDA-Public Use
  Company Number: PHBS2008AR00724

PATIENT
  Age: 80 Year
  Sex: Male

DRUGS (7)
  1. STALEVO 100 [Suspect]
     Indication: PARKINSON'S DISEASE
     Route: 065
     Dates: start: 20061101
  2. LEBOCAR [Concomitant]
     Dosage: 100/25 MG
     Route: 065
  3. CARVEDILOL [Concomitant]
     Dosage: 12.5 MG
     Route: 065
  4. PRAMIPEXOLE DIHYDROCHLORIDE [Concomitant]
     Dosage: 0.25 MG
     Route: 065
  5. ALDACTONE [Concomitant]
     Dosage: 100 MG
     Route: 065
  6. NEUREX [Concomitant]
     Route: 065
  7. GINKGO BILOBA [Concomitant]
     Route: 065

REACTIONS (6)
  - DELIRIUM [None]
  - HALLUCINATION, VISUAL [None]
  - HYPERTENSION [None]
  - MUSCLE RIGIDITY [None]
  - THROMBOCYTOPENIA [None]
  - TREMOR [None]
